FAERS Safety Report 8808771 (Version 3)
Quarter: 2014Q1

REPORT INFORMATION
  Report Type: Report from Study
  Country: US (occurrence: US)
  Receive Date: 20120926
  Receipt Date: 20140326
  Transmission Date: 20141002
  Serious: Yes (Hospitalization)
  Sender: FDA-Public Use
  Company Number: US-UCBSA-067131

PATIENT
  Age: 17 Year
  Sex: Female
  Weight: 65.5 kg

DRUGS (12)
  1. CIMZIA [Suspect]
     Indication: CROHN^S DISEASE
     Dosage: DOSE: 400 MG
     Route: 058
     Dates: start: 20100405
  2. FOLIC ACID [Concomitant]
     Indication: CROHN^S DISEASE
  3. BACTRIM [Concomitant]
     Indication: CROHN^S DISEASE
     Dates: start: 20120117
  4. BACTRIM [Concomitant]
     Indication: CROHN^S DISEASE
     Dates: start: 20130306
  5. PREDNISONE [Concomitant]
     Indication: CROHN^S DISEASE
     Dates: start: 200207
  6. METHOTREXATE [Concomitant]
     Indication: CROHN^S DISEASE
     Dates: start: 20050307
  7. REMICADE [Concomitant]
     Indication: CROHN^S DISEASE
     Dates: start: 20030721, end: 20080421
  8. REMICADE [Concomitant]
     Indication: CROHN^S DISEASE
     Dates: start: 20110624
  9. ACETAMINOPHEN [Concomitant]
     Indication: CROHN^S DISEASE
  10. FERROUS SULFATE [Concomitant]
     Indication: CROHN^S DISEASE
  11. PREVACID [Concomitant]
     Indication: CROHN^S DISEASE
  12. PSEUDOEPHEDRINE [Concomitant]
     Indication: CROHN^S DISEASE

REACTIONS (1)
  - Genital herpes [Recovering/Resolving]
